FAERS Safety Report 7325975-2 (Version None)
Quarter: 2011Q1

REPORT INFORMATION
  Report Type: 
  Country: None (occurrence: None)
  Receive Date: 20110302
  Receipt Date: 20110225
  Transmission Date: 20110831
  Serious: No
  Sender: FDA-Public Use
  Company Number: US-PFIZER INC-2011042045

PATIENT
  Sex: Female
  Weight: 69.4 kg

DRUGS (1)
  1. ESTRING [Suspect]
     Indication: MENOPAUSAL SYMPTOMS
     Dosage: 2 MG, UNK
     Route: 067
     Dates: start: 20110201, end: 20110201

REACTIONS (4)
  - DIARRHOEA [None]
  - FEELING ABNORMAL [None]
  - MALAISE [None]
  - NAUSEA [None]
